FAERS Safety Report 8424214-9 (Version None)
Quarter: 2012Q2

REPORT INFORMATION
  Report Type: 
  Country: None (occurrence: None)
  Receive Date: 20120608
  Receipt Date: 20120402
  Transmission Date: 20120825
  Serious: No
  Sender: FDA-Public Use
  Company Number: US-ASTRAZENECA-2012SE10766

PATIENT
  Age: 87 Year
  Sex: Female

DRUGS (2)
  1. ALBUTEROL [Concomitant]
  2. PULMICORT [Suspect]
     Dosage: EVERY 4 HOURS
     Route: 055

REACTIONS (4)
  - DYSPNOEA [None]
  - INCORRECT DOSE ADMINISTERED [None]
  - OFF LABEL USE [None]
  - INTENTIONAL DRUG MISUSE [None]
